FAERS Safety Report 21356418 (Version 1)
Quarter: 2022Q3

REPORT INFORMATION
  Report Type: Spontaneous
  Country: CN (occurrence: CN)
  Receive Date: 20220920
  Receipt Date: 20220920
  Transmission Date: 20221027
  Serious: Yes (Other)
  Sender: FDA-Public Use
  Company Number: CN-PFIZER INC-PV202200065653

PATIENT
  Age: 48 Year
  Sex: Male

DRUGS (4)
  1. TIGECYCLINE [Suspect]
     Active Substance: TIGECYCLINE
     Indication: Klebsiella infection
     Dosage: 100 MG, 2X/DAY
     Route: 041
     Dates: start: 20220825, end: 20220829
  2. CILASTATIN SODIUM\IMIPENEM [Concomitant]
     Active Substance: CILASTATIN SODIUM\IMIPENEM
     Indication: Klebsiella infection
     Dosage: UNK
  3. CARRIMYCIN [Concomitant]
     Indication: Klebsiella infection
     Dosage: UNK
  4. VORICONAZOLE [Concomitant]
     Active Substance: VORICONAZOLE
     Indication: Klebsiella infection
     Dosage: UNK

REACTIONS (1)
  - Coagulopathy [Recovering/Resolving]

NARRATIVE: CASE EVENT DATE: 20220829
